FAERS Safety Report 5866925-5 (Version None)
Quarter: 2008Q3

REPORT INFORMATION
  Report Type: 
  Country: None (occurrence: None)
  Receive Date: 20080902
  Receipt Date: 20080826
  Transmission Date: 20090109
  Serious: Yes (Hospitalization)
  Sender: FDA-Public Use
  Company Number: JP-EISAI MEDICAL RESEARCH-E2090-00524-SPO-JP

PATIENT
  Sex: Male

DRUGS (9)
  1. EXCEGRAN [Suspect]
     Indication: EPILEPSY
     Route: 048
     Dates: start: 20080703, end: 20080713
  2. EXCEGRAN [Suspect]
     Route: 048
     Dates: start: 20080714, end: 20080723
  3. EXCEGRAN [Suspect]
     Route: 048
     Dates: start: 20080724, end: 20080805
  4. MUCOSTA [Concomitant]
     Indication: GASTRITIS
     Route: 048
     Dates: start: 20030201
  5. ALLOID G [Concomitant]
     Indication: GASTRITIS
     Route: 048
     Dates: start: 20030201
  6. ASPARA POTASSIUM (POTASSIUM I-ASPARTATE) [Concomitant]
     Indication: HYPOKALAEMIA
     Route: 048
     Dates: start: 20050801
  7. DIAZEPAM [Concomitant]
     Indication: DEPRESSION
     Route: 048
     Dates: start: 20050801
  8. FLUVOXAMINE MALEATE [Concomitant]
     Route: 048
     Dates: start: 20050901
  9. TRYPTANOL [Concomitant]
     Indication: DEPRESSION
     Route: 048
     Dates: start: 20060101

REACTIONS (1)
  - DRUG ERUPTION [None]
